FAERS Safety Report 9002429 (Version 2)
Quarter: 2013Q1

REPORT INFORMATION
  Report Type: Spontaneous
  Country: US (occurrence: US)
  Receive Date: 20130107
  Receipt Date: 20130118
  Transmission Date: 20140127
  Serious: Yes (Other)
  Sender: FDA-Public Use
  Company Number: US-PFIZER INC-2013001975

PATIENT
  Age: 50 Year
  Sex: Female
  Weight: 64.4 kg

DRUGS (1)
  1. CHANTIX [Suspect]
     Indication: SMOKING CESSATION THERAPY
     Dosage: 0.5 MG, 1X/DAY
     Route: 048
     Dates: start: 20121101, end: 201211

REACTIONS (5)
  - Back disorder [Unknown]
  - Activities of daily living impaired [Unknown]
  - Mobility decreased [Unknown]
  - Drug ineffective [Unknown]
  - Back pain [Unknown]
